FAERS Safety Report 22868824 (Version 2)
Quarter: 2025Q2

REPORT INFORMATION
  Report Type: Spontaneous
  Country: TN (occurrence: TN)
  Receive Date: 20230825
  Receipt Date: 20250618
  Transmission Date: 20250717
  Serious: Yes (Hospitalization, Other)
  Sender: ELI LILLY AND COMPANY
  Company Number: TN-MLMSERVICE-20230811-4468435-1

PATIENT
  Age: 38 Year
  Sex: Female

DRUGS (2)
  1. FLUOXETINE HYDROCHLORIDE [Suspect]
     Active Substance: FLUOXETINE HYDROCHLORIDE
     Indication: Anxiety disorder
     Route: 065
  2. AMITRIPTYLINE [Concomitant]
     Active Substance: AMITRIPTYLINE
     Indication: Anxiety disorder
     Route: 065

REACTIONS (1)
  - Pancreatitis acute [Recovered/Resolved]
